FAERS Safety Report 24464395 (Version 1)
Quarter: 2024Q4

REPORT INFORMATION
  Report Type: Spontaneous
  Country: IL (occurrence: IL)
  Receive Date: 20241018
  Receipt Date: 20241018
  Transmission Date: 20250114
  Serious: Yes (Hospitalization)
  Sender: TEVA
  Company Number: IL-TEVA-VS-3254021

PATIENT
  Age: 76 Year
  Sex: Female

DRUGS (9)
  1. DULOXETINE HYDROCHLORIDE [Suspect]
     Active Substance: DULOXETINE HYDROCHLORIDE
     Indication: Depression
     Route: 065
     Dates: start: 2024
  2. DULOXETINE HYDROCHLORIDE [Suspect]
     Active Substance: DULOXETINE HYDROCHLORIDE
     Indication: Depression
     Dosage: DOSE OF 60 MG, AFTER ABOUT TWO WEEKS THE DOSE WAS INCREASED BY ANOTHER 30 MG.
     Route: 065
     Dates: start: 2024
  3. DULOXETINE HYDROCHLORIDE [Suspect]
     Active Substance: DULOXETINE HYDROCHLORIDE
     Indication: Depression
     Dosage: CURRENTLY  60 MG IN THE MORNING AND 60MG IN THE EVENING
     Route: 065
     Dates: start: 2024
  4. BISOPROLOL FUMARATE [Concomitant]
     Active Substance: BISOPROLOL FUMARATE
     Indication: Product used for unknown indication
     Route: 065
  5. NORLIP [Concomitant]
     Indication: Product used for unknown indication
     Route: 065
  6. LORAZEPAM [Concomitant]
     Active Substance: LORAZEPAM
     Indication: Product used for unknown indication
     Route: 065
  7. OMEGA-3 ACIDS [Concomitant]
     Active Substance: OMEGA-3 FATTY ACIDS
     Indication: Product used for unknown indication
     Route: 065
  8. VITAMINS [Concomitant]
     Active Substance: VITAMINS
     Indication: Product used for unknown indication
     Route: 065
  9. LOSEC [Concomitant]
     Active Substance: OMEPRAZOLE
     Indication: Product used for unknown indication
     Dosage: TEVA
     Route: 065

REACTIONS (3)
  - Fracture [Unknown]
  - Decreased appetite [Unknown]
  - Fatigue [Unknown]
